FAERS Safety Report 21516390 (Version 4)
Quarter: 2022Q4

REPORT INFORMATION
  Report Type: Spontaneous
  Country: US (occurrence: US)
  Receive Date: 20221027
  Receipt Date: 20221220
  Transmission Date: 20230112
  Serious: Yes (Other)
  Sender: FDA-Public Use
  Company Number: US-SUNOVION-2022SUN003041

PATIENT
  Age: 10 Year
  Sex: Female
  Weight: 33 kg

DRUGS (2)
  1. APTIOM [Suspect]
     Active Substance: ESLICARBAZEPINE ACETATE
     Indication: Epilepsy
     Dosage: 800 MG
     Route: 048
     Dates: start: 202210
  2. LEVETIRACETAM [Suspect]
     Active Substance: LEVETIRACETAM
     Dosage: UNK
     Route: 065

REACTIONS (6)
  - Seizure [Unknown]
  - Partial seizures [Unknown]
  - Sleep disorder [Unknown]
  - Eye movement disorder [Unknown]
  - Vision blurred [Unknown]
  - Therapy interrupted [Unknown]

NARRATIVE: CASE EVENT DATE: 20221017
